FAERS Safety Report 12772280 (Version 1)
Quarter: 2016Q3

REPORT INFORMATION
  Report Type: Spontaneous
  Country: GB (occurrence: GB)
  Receive Date: 20160922
  Receipt Date: 20160922
  Transmission Date: 20161109
  Serious: Yes (Disabling)
  Sender: FDA-Public Use
  Company Number: GB-BAYER-2016-183365

PATIENT
  Sex: Female
  Weight: 77.56 kg

DRUGS (2)
  1. MIRENA [Suspect]
     Active Substance: LEVONORGESTREL
     Dosage: 20 MCG/24HR, CONT
     Route: 015
     Dates: start: 201109
  2. MIRENA [Suspect]
     Active Substance: LEVONORGESTREL
     Dosage: 20 MCG/24HR, CONT
     Route: 015
     Dates: start: 2006, end: 201109

REACTIONS (13)
  - Anaemia vitamin B12 deficiency [Recovered/Resolved with Sequelae]
  - Anxiety [Recovering/Resolving]
  - Acne [Not Recovered/Not Resolved]
  - Rash pruritic [Not Recovered/Not Resolved]
  - Amenorrhoea [Not Recovered/Not Resolved]
  - Hirsutism [Not Recovered/Not Resolved]
  - Abnormal weight gain [Recovering/Resolving]
  - Breast enlargement [Not Recovered/Not Resolved]
  - Nausea [Recovering/Resolving]
  - Photosensitivity reaction [Not Recovered/Not Resolved]
  - Libido decreased [Not Recovered/Not Resolved]
  - Menopausal symptoms [Not Recovered/Not Resolved]
  - Vulvovaginal dryness [Not Recovered/Not Resolved]

NARRATIVE: CASE EVENT DATE: 2006
